FAERS Safety Report 5306626-5 (Version None)
Quarter: 2007Q2

REPORT INFORMATION
  Report Type: 
  Country: None (occurrence: None)
  Receive Date: 20070424
  Receipt Date: 20070411
  Transmission Date: 20071010
  Serious: Yes (Other)
  Sender: FDA-Public Use
  Company Number: JP-PFIZER INC-2007028800

PATIENT
  Age: 72 Year
  Sex: Female

DRUGS (2)
  1. CABASER [Suspect]
     Dosage: DAILY DOSE:4MG
     Route: 048
  2. PERGOLIDE MESYLATE [Concomitant]
     Route: 048

REACTIONS (4)
  - AORTIC VALVE INCOMPETENCE [None]
  - CARDIAC FAILURE [None]
  - HEART VALVE CALCIFICATION [None]
  - MITRAL VALVE INCOMPETENCE [None]
